FAERS Safety Report 5701567-3 (Version None)
Quarter: 2008Q2

REPORT INFORMATION
  Report Type: 
  Country: None (occurrence: None)
  Receive Date: 20080408
  Receipt Date: 20080326
  Transmission Date: 20081010
  Serious: Yes (Life-Threatening, Other)
  Sender: FDA-Public Use
  Company Number: TRP_01017_2008

PATIENT
  Sex: Male

DRUGS (5)
  1. RIBASPHERE/RIBAVARIN/THREE RIVERS PHARMA [Suspect]
     Indication: HEPATITIS C
     Dosage: 1200 MG QD ORAL
     Route: 048
     Dates: start: 20070710, end: 20070729
  2. PEG-INTRON [Suspect]
     Indication: HEPATITIS C
     Dosage: 150 ?G 1X/WEEK SUBCUTANEOUS
     Route: 058
     Dates: start: 20070710, end: 20071226
  3. NEXIUM [Concomitant]
  4. TYLENOL (CAPLET) [Concomitant]
  5. IBUPROFEN [Concomitant]

REACTIONS (9)
  - ALCOHOL ABUSE [None]
  - ALCOHOL POISONING [None]
  - ALOPECIA [None]
  - CHEILITIS [None]
  - DEPRESSION [None]
  - NEUTROPENIA [None]
  - PNEUMONIA [None]
  - RESTLESS LEGS SYNDROME [None]
  - SUICIDAL IDEATION [None]
